FAERS Safety Report 13984588 (Version 2)
Quarter: 2017Q4

REPORT INFORMATION
  Report Type: Spontaneous
  Country: NL (occurrence: NL)
  Receive Date: 20170918
  Receipt Date: 20171026
  Transmission Date: 20180321
  Serious: Yes (Hospitalization)
  Sender: FDA-Public Use
  Company Number: NL-CURIUM PHARMACEUTICALS-2026712

PATIENT
  Age: 1 Month
  Sex: Male
  Weight: 3 kg

DRUGS (3)
  1. TECHNESCAN MAG3 [Suspect]
     Active Substance: TECHNETIUM TC-99M TIATIDE
     Indication: RENAL SCAN
     Route: 040
     Dates: start: 20170825, end: 20170825
  2. FUROSEMIDE. [Concomitant]
     Active Substance: FUROSEMIDE
     Route: 040
     Dates: start: 20170825, end: 20170825
  3. DRYTEC (TECHNETIUM TC99M GENERATOR) [Concomitant]
     Active Substance: TECHNETIUM TC-99M SODIUM PERTECHNETATE
     Route: 040
     Dates: start: 20170825, end: 20170825

REACTIONS (3)
  - Somnolence [Recovering/Resolving]
  - Abdominal distension [Recovering/Resolving]
  - Malaise [Recovering/Resolving]

NARRATIVE: CASE EVENT DATE: 20170825
